FAERS Safety Report 5289308-8 (Version None)
Quarter: 2007Q2

REPORT INFORMATION
  Report Type: 
  Country: None (occurrence: None)
  Receive Date: 20070406
  Receipt Date: 20070327
  Transmission Date: 20071010
  Serious: Yes (Other)
  Sender: FDA-Public Use
  Company Number: US-JNJFOC-20070306700

PATIENT
  Sex: Male

DRUGS (2)
  1. NIZORAL A-D [Suspect]
  2. NIZORAL A-D [Suspect]
     Indication: DANDRUFF

REACTIONS (1)
  - VISUAL ACUITY REDUCED [None]
